FAERS Safety Report 21521644 (Version 3)
Quarter: 2022Q4

REPORT INFORMATION
  Report Type: Report from Study
  Country: CA (occurrence: CA)
  Receive Date: 20221028
  Receipt Date: 20221213
  Transmission Date: 20230113
  Serious: Yes (Hospitalization, Other)
  Sender: FDA-Public Use
  Company Number: CA-NOVARTISPH-NVSC2022CA234109

PATIENT
  Age: 66 Year
  Sex: Female

DRUGS (2)
  1. ERELZI [Suspect]
     Active Substance: ETANERCEPT-SZZS
     Indication: Rheumatoid arthritis
     Dosage: 50 MG
     Route: 058
     Dates: start: 20220913
  2. ERELZI [Suspect]
     Active Substance: ETANERCEPT-SZZS
     Dosage: 50 MG, (TUESDAY NIGHT)
     Route: 058

REACTIONS (6)
  - Pneumonia [Unknown]
  - Pulmonary thrombosis [Recovered/Resolved]
  - Pleural effusion [Not Recovered/Not Resolved]
  - Pulmonary pain [Unknown]
  - Insomnia [Unknown]
  - Condition aggravated [Unknown]
